FAERS Safety Report 10734504 (Version 2)
Quarter: 2015Q1

REPORT INFORMATION
  Report Type: Report from Study
  Country: US (occurrence: US)
  Receive Date: 20150123
  Receipt Date: 20150123
  Transmission Date: 20150721
  Serious: No
  Sender: FDA-Public Use
  Company Number: US-AMGEN INC.-2014-0507

PATIENT
  Age: 76 Year
  Sex: Male

DRUGS (13)
  1. FLUCONAZOLE. [Concomitant]
     Active Substance: FLUCONAZOLE
  2. ENOXAPARIN [Concomitant]
     Active Substance: ENOXAPARIN
     Indication: PROPHYLAXIS
  3. DEXAMETHASONE. [Concomitant]
     Active Substance: DEXAMETHASONE
     Indication: PLASMA CELL MYELOMA
  4. REVLIMID [Concomitant]
     Active Substance: LENALIDOMIDE
     Indication: PLASMA CELL MYELOMA
  5. KYPROLIS [Suspect]
     Active Substance: CARFILZOMIB
     Indication: PLASMA CELL MYELOMA
     Route: 042
     Dates: start: 2013, end: 20140127
  6. KYPROLIS [Suspect]
     Active Substance: CARFILZOMIB
     Dosage: FREQUENCY: 2 EVERY 2 WEEKS?
     Route: 042
     Dates: start: 20140311, end: 201406
  7. ACYCLOVIR. [Concomitant]
     Active Substance: ACYCLOVIR
  8. ZOMETA [Concomitant]
     Active Substance: ZOLEDRONIC ACID
  9. KYPROLIS [Suspect]
     Active Substance: CARFILZOMIB
     Dosage: FREQUENCY: 2 EVERY 2 WEEKS?
     Route: 042
     Dates: start: 20140127, end: 201402
  10. FENTANYL TRANSDERMAL SYSTEM [Concomitant]
     Active Substance: FENTANYL
     Indication: PRODUCT USED FOR UNKNOWN INDICATION
  11. SULFAMETHOXAZOLE TMP DS [Concomitant]
  12. ASPIRIN. [Concomitant]
     Active Substance: ASPIRIN
     Indication: PROPHYLAXIS
  13. MULTIVITAMINS [Concomitant]
     Active Substance: VITAMINS

REACTIONS (7)
  - Nausea [Unknown]
  - Anxiety [Not Recovered/Not Resolved]
  - Full blood count decreased [Not Recovered/Not Resolved]
  - Thrombocytopenia [Recovering/Resolving]
  - Pain in extremity [Recovered/Resolved]
  - Fatigue [Not Recovered/Not Resolved]
  - Hypotension [Recovered/Resolved]

NARRATIVE: CASE EVENT DATE: 2014
